FAERS Safety Report 8433000-5 (Version None)
Quarter: 2012Q2

REPORT INFORMATION
  Report Type: 
  Country: None (occurrence: None)
  Receive Date: 20120613
  Receipt Date: 20120607
  Transmission Date: 20120825
  Serious: Yes (Death, Other)
  Sender: FDA-Public Use
  Company Number: CZ-ROCHE-1076910

PATIENT
  Sex: Female
  Weight: 56 kg

DRUGS (2)
  1. EVEROLIMUS [Suspect]
     Indication: METASTATIC RENAL CELL CARCINOMA
     Route: 048
     Dates: start: 20090415
  2. AVASTIN [Suspect]
     Indication: METASTATIC RENAL CELL CARCINOMA
     Route: 048
     Dates: start: 20090415, end: 20100120

REACTIONS (5)
  - PULMONARY EMBOLISM [None]
  - SYNCOPE [None]
  - DIZZINESS [None]
  - SUDDEN DEATH [None]
  - RESPIRATORY ARREST [None]
